FAERS Safety Report 17037472 (Version 1)
Quarter: 2019Q4

REPORT INFORMATION
  Report Type: Spontaneous
  Country: SE (occurrence: SE)
  Receive Date: 20191115
  Receipt Date: 20191115
  Transmission Date: 20200122
  Serious: Yes (Life-Threatening)
  Sender: FDA-Public Use
  Company Number: SE-B.I. PHARMACEUTICALS,INC./RIDGEFIELD-2019-12-114238

PATIENT
  Age: 72 Year
  Sex: Female

DRUGS (1)
  1. JARDIANCE [Suspect]
     Active Substance: EMPAGLIFLOZIN
     Indication: TYPE 2 DIABETES MELLITUS
     Route: 048
     Dates: start: 20180912, end: 20191028

REACTIONS (1)
  - Hypernatraemia [Not Recovered/Not Resolved]

NARRATIVE: CASE EVENT DATE: 20191026
